FAERS Safety Report 15335562 (Version 3)
Quarter: 2018Q3

REPORT INFORMATION
  Report Type: Spontaneous
  Country: BR (occurrence: BR)
  Receive Date: 20180830
  Receipt Date: 20180907
  Transmission Date: 20181010
  Serious: Yes (Other)
  Sender: FDA-Public Use
  Company Number: BR-PFIZER INC-2018333955

PATIENT
  Age: 52 Year
  Sex: Male

DRUGS (3)
  1. RIVOTRIL [Concomitant]
     Active Substance: CLONAZEPAM
     Dosage: UNK
  2. EFFEXOR XR [Suspect]
     Active Substance: VENLAFAXINE HYDROCHLORIDE
     Dosage: 825 MG, DAILY (4 CAPSULES OF 150 MG AND 3 CAPSULES OF 75 MG AT NIGHT)
     Route: 048
  3. CARBOLITIUM [Suspect]
     Active Substance: LITHIUM CARBONATE
     Dosage: 300 MG, DAILY
     Dates: start: 2017

REACTIONS (4)
  - Mobility decreased [Not Recovered/Not Resolved]
  - Prescribed overdose [Not Recovered/Not Resolved]
  - Tremor [Not Recovered/Not Resolved]
  - Communication disorder [Not Recovered/Not Resolved]

NARRATIVE: CASE EVENT DATE: 201802
